FAERS Safety Report 11892071 (Version 1)
Quarter: 2016Q1

REPORT INFORMATION
  Report Type: Spontaneous
  Country: US (occurrence: US)
  Receive Date: 20160106
  Receipt Date: 20160106
  Transmission Date: 20160526
  Serious: Yes (Hospitalization, Other)
  Sender: FDA-Public Use
  Company Number: US-BAUSCH-BL-2015-031215

PATIENT
  Age: 72 Year
  Sex: Female

DRUGS (1)
  1. THEOPHYLLINE [Suspect]
     Active Substance: THEOPHYLLINE ANHYDROUS
     Indication: CHRONIC OBSTRUCTIVE PULMONARY DISEASE
     Route: 065

REACTIONS (12)
  - Acute myocardial infarction [Recovered/Resolved]
  - Seizure [Recovered/Resolved]
  - Lactic acidosis [Recovered/Resolved]
  - Stress cardiomyopathy [Recovered/Resolved]
  - Hypotension [Recovered/Resolved]
  - Hyperglycaemia [Recovered/Resolved]
  - Supraventricular tachycardia [Recovered/Resolved]
  - Toxicity to various agents [Recovered/Resolved]
  - Blood potassium decreased [Recovered/Resolved]
  - Bundle branch block right [Recovered/Resolved]
  - Mental status changes [Recovered/Resolved]
  - Acute kidney injury [Recovered/Resolved]
